FAERS Safety Report 8293541 (Version 3)
Quarter: 2012Q4

REPORT INFORMATION
  Report Type: 
  Country: US (occurrence: None)
  Receive Date: 20111209
  Receipt Date: 20120914
  Transmission Date: 20130627
  Serious: Yes (Death, Other)
  Sender: FDA-Public Use
  Company Number: 2011AP002845

PATIENT
  Age: 68 Year
  Sex: Male

DRUGS (3)
  1. AMIODARONE HYDROCHLORIDE [Suspect]
     Indication: DRUG USE FOR UNKNOWN INDICATION
     Dosage: 400 MG;TID;
  2. COLCHICINE [Suspect]
     Indication: GOUT
     Dosage: 1 MG; IV; 1.2 MG; PO
     Route: 042
  3. COLCHICINE [Suspect]
     Indication: GOUT
     Route: 048

REACTIONS (5)
  - Renal failure acute [None]
  - Thrombocytopenia [None]
  - Cardiac arrest [None]
  - Toxicity to various agents [None]
  - Drug interaction [None]
